FAERS Safety Report 6414762-5 (Version None)
Quarter: 2009Q4

REPORT INFORMATION
  Report Type: 
  Country: None (occurrence: None)
  Receive Date: 20091026
  Receipt Date: 20091026
  Transmission Date: 20100525
  Serious: Yes (Hospitalization)
  Sender: FDA-Public Use
  Company Number: None

PATIENT
  Age: 40 Year
  Sex: Female
  Weight: 97.5234 kg

DRUGS (1)
  1. KETOCONAZOLE [Suspect]
     Indication: MYCOTOXICOSIS
     Dosage: 200 MG 2 TIMES PER DAY PO
     Route: 048
     Dates: start: 20091017, end: 20091021

REACTIONS (1)
  - APPENDICITIS [None]
